FAERS Safety Report 10259853 (Version 1)
Quarter: 2014Q2

REPORT INFORMATION
  Report Type: Spontaneous
  Country: US (occurrence: US)
  Receive Date: 20140625
  Receipt Date: 20140625
  Transmission Date: 20141212
  Serious: Yes (Hospitalization, Other)
  Sender: FDA-Public Use
  Company Number: US-ELI_LILLY_AND_COMPANY-US201406005878

PATIENT
  Age: 54 Year
  Sex: Male

DRUGS (2)
  1. INSULIN HUMAN [Suspect]
     Indication: PRODUCT USED FOR UNKNOWN INDICATION
     Dosage: UNK
     Route: 065
  2. LEVEMIR [Concomitant]

REACTIONS (4)
  - Diabetic ketoacidosis [Unknown]
  - Road traffic accident [Unknown]
  - Neck injury [Unknown]
  - Blood glucose increased [Unknown]
